FAERS Safety Report 10013430 (Version 1)
Quarter: 2014Q1

REPORT INFORMATION
  Report Type: Report from Study
  Country: US (occurrence: US)
  Receive Date: 20140314
  Receipt Date: 20140314
  Transmission Date: 20141002
  Serious: Yes (Death, Hospitalization)
  Sender: FDA-Public Use
  Company Number: US-CELGENEUS-163-CCAZA-14031957

PATIENT
  Age: 59 Year
  Sex: Male
  Weight: 99 kg

DRUGS (3)
  1. AZACITIDINE INJECTABLE [Suspect]
     Indication: MYELODYSPLASTIC SYNDROME
     Dates: start: 201301, end: 201305
  2. AZACITIDINE INJECTABLE [Suspect]
     Dates: start: 20130909
  3. AZACITIDINE INJECTABLE [Suspect]
     Dates: start: 20131216, end: 20131220

REACTIONS (3)
  - Respiratory failure [Fatal]
  - Pulmonary fibrosis [Unknown]
  - Pneumonitis [Unknown]
